FAERS Safety Report 6933245-7 (Version None)
Quarter: 2010Q3

REPORT INFORMATION
  Report Type: 
  Country: None (occurrence: None)
  Receive Date: 20100820
  Receipt Date: 20100809
  Transmission Date: 20110219
  Serious: Yes (Hospitalization, Other)
  Sender: FDA-Public Use
  Company Number: AU-BAYER-201018015GPV

PATIENT
  Age: 33 Year
  Sex: Male
  Weight: 86 kg

DRUGS (6)
  1. ALEMTUZUMAB [Suspect]
     Indication: MULTIPLE SCLEROSIS
     Dosage: MONTH 0
     Route: 042
     Dates: start: 20090223, end: 20090227
  2. ALEMTUZUMAB [Suspect]
     Dosage: MONTH 12
     Route: 042
     Dates: start: 20100222, end: 20100224
  3. METHYLPREDNISOLONE [Concomitant]
     Dates: start: 20090223, end: 20090225
  4. METHYLPREDNISOLONE [Concomitant]
     Dates: start: 20100222, end: 20100224
  5. METHYLPREDNISOLONE [Concomitant]
     Dates: start: 20091214, end: 20091216
  6. POTASSIUM CHLORIDE [Concomitant]

REACTIONS (1)
  - HAEMOPTYSIS [None]
